FAERS Safety Report 9841600 (Version 1)
Quarter: 2013Q4

REPORT INFORMATION
  Report Type: Spontaneous
  Country: US (occurrence: None)
  Receive Date: 20131219
  Receipt Date: 20131219
  Transmission Date: 20140711
  Serious: Yes (Death, Other)
  Sender: FDA-Public Use
  Company Number: 163-20785-12120886

PATIENT
  Age: 88 Year
  Sex: Male
  Weight: 60.87 kg

DRUGS (6)
  1. THALOMID [Suspect]
     Indication: PLASMA CELL MYELOMA
     Dosage: 1 IN 1 D
     Route: 048
     Dates: start: 20120123
  2. POLIC ACID [Concomitant]
  3. NORVASC [Concomitant]
  4. DECADRON [Concomitant]
  5. GABAPENTIN [Concomitant]
  6. VICODIN [Concomitant]

REACTIONS (3)
  - Plasma cell myeloma [None]
  - Haemoglobin decreased [None]
  - Plasma cell myeloma recurrent [None]
